FAERS Safety Report 21961533 (Version 2)
Quarter: 2024Q3

REPORT INFORMATION
  Report Type: Spontaneous
  Country: FI (occurrence: FI)
  Receive Date: 20230207
  Receipt Date: 20240807
  Transmission Date: 20241017
  Serious: Yes (Other)
  Sender: ORGANON
  Company Number: FI-009507513-1910FIN008696

PATIENT
  Sex: Male

DRUGS (11)
  1. CARBIDOPA\LEVODOPA [Suspect]
     Active Substance: CARBIDOPA\LEVODOPA
     Indication: Parkinson^s disease
     Dosage: 4.5 DOSAGE FORM, 1 D
     Route: 048
     Dates: start: 2009
  2. CARBIDOPA\LEVODOPA [Suspect]
     Active Substance: CARBIDOPA\LEVODOPA
     Dosage: 200/50 MGX3/DAILY (4.5 DOSAGE FORM, 1 IN 8 HR)
     Route: 048
     Dates: start: 200909, end: 200912
  3. CARBIDOPA\LEVODOPA [Suspect]
     Active Substance: CARBIDOPA\LEVODOPA
     Dosage: 200/50 MGX 4/DAILY (1 IN 6 HR)
     Route: 048
     Dates: start: 200912, end: 201208
  4. CARBIDOPA\LEVODOPA [Suspect]
     Active Substance: CARBIDOPA\LEVODOPA
     Dosage: 200/50 MGX 3.5/DAILY (1 D)
     Route: 048
     Dates: start: 201208, end: 201408
  5. CARBIDOPA\LEVODOPA [Suspect]
     Active Substance: CARBIDOPA\LEVODOPA
     Dosage: 200/50 MGX 4.5/DAILY (1 D)
     Route: 048
     Dates: start: 201408
  6. PRAMIPEXOLE [Suspect]
     Active Substance: PRAMIPEXOLE\PRAMIPEXOLE DIHYDROCHLORIDE
     Indication: Parkinson^s disease
     Dosage: 0.18 MG X3/DAILY
     Route: 048
     Dates: start: 200909, end: 200912
  7. PRAMIPEXOLE [Suspect]
     Active Substance: PRAMIPEXOLE\PRAMIPEXOLE DIHYDROCHLORIDE
     Dosage: 0.35 MG X1/DAILY
     Route: 048
     Dates: start: 200912, end: 201003
  8. PRAMIPEXOLE [Suspect]
     Active Substance: PRAMIPEXOLE\PRAMIPEXOLE DIHYDROCHLORIDE
     Dosage: 1.05 MG X1/DAILY
     Route: 048
     Dates: start: 201003, end: 201104
  9. PRAMIPEXOLE [Suspect]
     Active Substance: PRAMIPEXOLE\PRAMIPEXOLE DIHYDROCHLORIDE
     Dosage: 1.57 MG X1/DAILY
     Route: 048
     Dates: start: 201104, end: 201208
  10. PRAMIPEXOLE [Suspect]
     Active Substance: PRAMIPEXOLE\PRAMIPEXOLE DIHYDROCHLORIDE
     Dosage: 2.1 MG X1/DAILY
     Route: 048
     Dates: start: 201208, end: 201509
  11. PRAMIPEXOLE [Suspect]
     Active Substance: PRAMIPEXOLE\PRAMIPEXOLE DIHYDROCHLORIDE
     Dosage: 1.05 MG X1/DAILY
     Route: 048
     Dates: start: 201509, end: 20190801

REACTIONS (9)
  - Venous thrombosis [Recovering/Resolving]
  - Constipation [Unknown]
  - Micturition urgency [Recovered/Resolved]
  - Blood pressure increased [Unknown]
  - Skin discolouration [Unknown]
  - Increased viscosity of upper respiratory secretion [Recovering/Resolving]
  - Oedema peripheral [Recovered/Resolved]
  - Urinary incontinence [Recovered/Resolved]
  - Pollakiuria [Recovered/Resolved]

NARRATIVE: CASE EVENT DATE: 20090101
